FAERS Safety Report 5005793-0 (Version None)
Quarter: 2006Q2

REPORT INFORMATION
  Report Type: 
  Country: None (occurrence: None)
  Receive Date: 20060517
  Receipt Date: 20060517
  Transmission Date: 20061013
  Serious: Yes (Hospitalization, Other)
  Sender: FDA-Public Use
  Company Number: None

PATIENT
  Sex: Female
  Weight: 3.1752 kg

DRUGS (4)
  1. TYLONAL #3 [Suspect]
     Indication: PREGNANCY
     Dates: start: 19841029
  2. DEMEROL [Suspect]
     Indication: PREGNANCY
     Dosage: 50 MG
     Dates: start: 19840918
  3. PHENERGAN [Suspect]
     Indication: PREGNANCY
     Dosage: 25 MG
     Dates: start: 19841105
  4. GI COCKTAILS [Concomitant]

REACTIONS (9)
  - DEHYDRATION [None]
  - DIZZINESS [None]
  - DRUG EXPOSURE DURING PREGNANCY [None]
  - FLUID INTAKE REDUCED [None]
  - GROWTH RETARDATION [None]
  - MALAISE [None]
  - ORAL INTAKE REDUCED [None]
  - SCREAMING [None]
  - TREMOR [None]
